FAERS Safety Report 9368610 (Version 1)
Quarter: 2013Q2

REPORT INFORMATION
  Report Type: Spontaneous
  Country: US (occurrence: US)
  Receive Date: 20130626
  Receipt Date: 20130626
  Transmission Date: 20140414
  Serious: No
  Sender: FDA-Public Use
  Company Number: US-ASTELLAS-2013US000611

PATIENT
  Sex: Female
  Weight: 49 kg

DRUGS (7)
  1. VESICARE [Suspect]
     Indication: HYPERTONIC BLADDER
     Dosage: 5 MG, UID/QD
     Route: 048
  2. COREG [Concomitant]
     Indication: CARDIAC DISORDER
     Dosage: 20 MG, 1 TAB IN THE MORNING AND 1IN THE AFTERNOON
     Route: 048
  3. AMBIEN [Concomitant]
     Indication: INSOMNIA
     Dosage: 10 MG, QHS
     Route: 048
  4. COUMADIN                           /00014802/ [Concomitant]
     Dosage: 10 MG, 1 TAB IN THE MORNING 5 DAYS A WEEK
     Route: 048
  5. COUMADIN                           /00014802/ [Concomitant]
     Dosage: 7.5 MG, 1 TAB IN THE MORNING 2 DAYS A WEEK
     Route: 048
  6. TYLENOL ARTHRITIS [Concomitant]
     Indication: ARTHRITIS
     Dosage: 650 MG, UID/QD
     Route: 048
  7. ESTRADIOL [Concomitant]
     Indication: HORMONE REPLACEMENT THERAPY
     Dosage: 0.1 MG, 1 TAB AT NIGHT
     Route: 048

REACTIONS (3)
  - Skin discolouration [Unknown]
  - Pruritus [Unknown]
  - Fatigue [Unknown]
